FAERS Safety Report 19291903 (Version 1)
Quarter: 2021Q2

REPORT INFORMATION
  Report Type: Spontaneous
  Country: US (occurrence: US)
  Receive Date: 20210524
  Receipt Date: 20210524
  Transmission Date: 20210717
  Serious: No
  Sender: FDA-Public Use
  Company Number: NVSC2021US108683

PATIENT
  Sex: Female

DRUGS (2)
  1. CELEXA [Concomitant]
     Active Substance: CITALOPRAM HYDROBROMIDE
     Indication: PRODUCT USED FOR UNKNOWN INDICATION
     Dosage: UNK
     Route: 065
  2. GLEEVEC [Suspect]
     Active Substance: IMATINIB MESYLATE
     Indication: PRODUCT USED FOR UNKNOWN INDICATION
     Dosage: 400 MG, QD
     Route: 065

REACTIONS (10)
  - Asthenia [Unknown]
  - Gait disturbance [Unknown]
  - Diarrhoea [Unknown]
  - Blood cholesterol increased [Unknown]
  - Mobility decreased [Unknown]
  - Peripheral arterial occlusive disease [Unknown]
  - Arterial occlusive disease [Unknown]
  - Vomiting [Unknown]
  - Nervous system disorder [Unknown]
  - Hypertension [Unknown]
